FAERS Safety Report 8011342-5 (Version None)
Quarter: 2011Q4

REPORT INFORMATION
  Report Type: 
  Country: None (occurrence: None)
  Receive Date: 20111222
  Receipt Date: 20111213
  Transmission Date: 20120403
  Serious: Yes (Hospitalization)
  Sender: FDA-Public Use
  Company Number: 2011P1014269

PATIENT
  Age: 31 Year
  Sex: Male

DRUGS (1)
  1. MEFLOQUINE HYDROCHLORIDE [Suspect]
     Indication: MALARIA PROPHYLAXIS
     Dosage: 250 MG;QW

REACTIONS (10)
  - MANIA [None]
  - HYPOMANIA [None]
  - LOGORRHOEA [None]
  - HALLUCINATION, AUDITORY [None]
  - FLIGHT OF IDEAS [None]
  - RESTLESSNESS [None]
  - HALLUCINATION [None]
  - NEUROPSYCHIATRIC SYNDROME [None]
  - DELUSION [None]
  - DELUSION OF GRANDEUR [None]
